FAERS Safety Report 7388515-8 (Version None)
Quarter: 2011Q2

REPORT INFORMATION
  Report Type: 
  Country: None (occurrence: None)
  Receive Date: 20110401
  Receipt Date: 20110318
  Transmission Date: 20111010
  Serious: Yes (Other)
  Sender: FDA-Public Use
  Company Number: FR-JNJFOC-20110308645

PATIENT
  Age: 50 Year
  Sex: Male

DRUGS (5)
  1. PROPOFAN [Concomitant]
     Indication: PAIN
     Route: 048
  2. ATROPINE [Concomitant]
     Indication: UVEITIS
     Route: 047
  3. REMICADE [Suspect]
     Indication: SPONDYLITIS
     Dosage: 47TH INFUSION
     Route: 042
  4. REMICADE [Suspect]
     Dosage: 415 MG; DURATION MORE THAN 2 YEARS
     Route: 042
  5. ALTIM [Concomitant]

REACTIONS (1)
  - THYROIDITIS [None]
